FAERS Safety Report 9192564 (Version 2)
Quarter: 2013Q1

REPORT INFORMATION
  Report Type: Spontaneous
  Country: IT (occurrence: None)
  Receive Date: 20130325
  Receipt Date: 20130328
  Transmission Date: 20140127
  Serious: Yes (Hospitalization)
  Sender: FDA-Public Use
  Company Number: AUR-APL-2013-02518

PATIENT
  Age: 80 Year
  Sex: Female

DRUGS (4)
  1. MIRTAZAPINE [Suspect]
     Indication: PRODUCT USED FOR UNKNOWN INDICATION
     Route: 048
     Dates: start: 20130312, end: 20130312
  2. MIRTAZAPINE [Suspect]
     Route: 048
     Dates: start: 20130312, end: 20130312
  3. XANAX [Suspect]
     Indication: PRODUCT USED FOR UNKNOWN INDICATION
     Route: 048
     Dates: start: 20130312, end: 20130312
  4. TOLOFEN (PROMAZINE HYDEOCHLORIDE) [Concomitant]

REACTIONS (10)
  - Haematocrit decreased [None]
  - Haemoglobin decreased [None]
  - Blood glucose increased [None]
  - Red blood cell count decreased [None]
  - Sopor [None]
  - Body temperature increased [None]
  - Lymphocyte percentage decreased [None]
  - Neutrophil percentage increased [None]
  - Oxygen saturation decreased [None]
  - White blood cell count increased [None]
